FAERS Safety Report 21934417 (Version 1)
Quarter: 2023Q1

REPORT INFORMATION
  Report Type: Other
  Country: US (occurrence: None)
  Receive Date: 20230201
  Receipt Date: 20230201
  Transmission Date: 20230418
  Serious: Yes (Other)
  Sender: FDA-Public Use
  Company Number: US-ROCHE-3272213

PATIENT
  Age: 39 Year
  Sex: Female
  Weight: 145.28 kg

DRUGS (17)
  1. OCREVUS [Suspect]
     Active Substance: OCRELIZUMAB
     Indication: Relapsing multiple sclerosis
     Route: 042
  2. CLARITIN [Concomitant]
     Active Substance: LORATADINE
  3. FLUTICASONE [Concomitant]
     Active Substance: FLUTICASONE
  4. MEDROL [Concomitant]
     Active Substance: METHYLPREDNISOLONE
  5. TIZANIDINE [Concomitant]
     Active Substance: TIZANIDINE
  6. VESICARE [Concomitant]
     Active Substance: SOLIFENACIN SUCCINATE
  7. OXCARBAZEPINE [Concomitant]
     Active Substance: OXCARBAZEPINE
  8. ZYRTEC [Concomitant]
     Active Substance: CETIRIZINE HYDROCHLORIDE
  9. WELLBUTRIN [Concomitant]
     Active Substance: BUPROPION HYDROCHLORIDE
  10. PRILOSEC [Concomitant]
     Active Substance: OMEPRAZOLE MAGNESIUM
  11. GILENYA [Concomitant]
     Active Substance: FINGOLIMOD HYDROCHLORIDE
  12. MOTRIN [Concomitant]
     Active Substance: IBUPROFEN
  13. PROVIGIL (BELGIUM) [Concomitant]
  14. CALCIUM [Concomitant]
     Active Substance: CALCIUM
  15. VITAMIN D3 [Concomitant]
     Active Substance: CHOLECALCIFEROL
  16. CALCIUM;MAGNESIUM;ZINC [Concomitant]
  17. NIZORAL [Concomitant]
     Active Substance: KETOCONAZOLE

REACTIONS (4)
  - Multiple sclerosis [Unknown]
  - COVID-19 [Unknown]
  - Candida infection [Unknown]
  - Dysdiadochokinesis [Unknown]
